FAERS Safety Report 5709517-0 (Version None)
Quarter: 2008Q2

REPORT INFORMATION
  Report Type: 
  Country: None (occurrence: None)
  Receive Date: 20080418
  Receipt Date: 20080415
  Transmission Date: 20081010
  Serious: Yes (Life-Threatening, Hospitalization)
  Sender: FDA-Public Use
  Company Number: US-GILEAD-2008-0016043

PATIENT
  Sex: Male
  Weight: 61.744 kg

DRUGS (8)
  1. TRUVADA [Suspect]
     Indication: HIV INFECTION
     Route: 048
     Dates: start: 20071025
  2. PREZISTA [Suspect]
     Indication: HIV INFECTION
     Route: 048
     Dates: start: 20071025
  3. TMC 125 [Suspect]
     Indication: HIV INFECTION
     Dates: start: 20071025
  4. ZIDOVUDINE [Suspect]
     Indication: HIV INFECTION
     Route: 048
     Dates: start: 20071025
  5. EFFEXOR XR [Concomitant]
     Indication: DEPRESSION
     Route: 048
     Dates: end: 20071029
  6. EFFEXOR XR [Concomitant]
     Route: 048
     Dates: start: 20071227
  7. LITHIUM CARBONATE [Concomitant]
     Indication: MAJOR DEPRESSION
     Route: 048
     Dates: start: 20071129, end: 20080107
  8. TESTOSTERONE [Concomitant]
     Indication: HYPOGONADISM
     Route: 061
     Dates: start: 20071015, end: 20071015

REACTIONS (2)
  - CHEST PAIN [None]
  - MYOCARDIAL INFARCTION [None]
